FAERS Safety Report 9801389 (Version 1)
Quarter: 2014Q1

REPORT INFORMATION
  Report Type: Spontaneous
  Country: GB (occurrence: GB)
  Receive Date: 20140107
  Receipt Date: 20140107
  Transmission Date: 20141002
  Serious: Yes (Hospitalization, Other)
  Sender: FDA-Public Use
  Company Number: GB-TEVA-453794ISR

PATIENT
  Age: 67 Year
  Sex: Female

DRUGS (17)
  1. AMIODARONE [Suspect]
     Indication: ATRIAL FIBRILLATION
     Dosage: 600 MILLIGRAM DAILY;
     Route: 048
  2. AMIODARONE [Suspect]
     Indication: ATRIAL FIBRILLATION
     Dosage: 400 MILLIGRAM DAILY;
     Route: 048
  3. AMIODARONE [Suspect]
     Indication: ATRIAL FIBRILLATION
     Dosage: DUE TO NON-COMPLIANCE, UNKNOWN HOW LONG PATIENT TOOK MEDICATION FOR.
     Route: 048
     Dates: start: 20130125
  4. AMIODARONE [Suspect]
     Indication: ATRIAL FIBRILLATION
     Dosage: 400 MILLIGRAM DAILY;
     Route: 048
     Dates: start: 20131029, end: 20131103
  5. AMIODARONE [Suspect]
     Indication: ATRIAL FIBRILLATION
     Dosage: 200 MILLIGRAM DAILY;
     Route: 048
     Dates: start: 20131104, end: 20131108
  6. AMIODARONE [Suspect]
     Indication: ATRIAL FIBRILLATION
     Dosage: 100 MILLIGRAM DAILY;
     Route: 048
     Dates: start: 20131109, end: 20131122
  7. HUMULIN [Concomitant]
     Dosage: 44 IU (INTERNATIONAL UNIT) DAILY;
  8. ADCAL-D3 [Concomitant]
     Dosage: 2 DOSAGE FORMS DAILY;
  9. OMEPRAZOLE [Concomitant]
     Dosage: 20 MILLIGRAM DAILY;
     Route: 048
  10. SIMVASTATIN [Concomitant]
     Dosage: AT NIGHT
     Route: 048
  11. DIGOXIN [Concomitant]
     Dosage: 62.5 MICROGRAM DAILY;
     Route: 048
  12. ALENDRONIC ACID [Concomitant]
     Route: 048
  13. PREDNISOLONE [Concomitant]
     Dosage: REDUCING DOSE
     Route: 048
  14. FUROSEMIDE [Concomitant]
     Dosage: 40 MILLIGRAM DAILY;
     Route: 048
  15. XARELTO [Concomitant]
     Dosage: IN THE MORNING. SWITCHED FROM WARFARIN.
     Route: 048
  16. BISOPROLOL [Concomitant]
     Dosage: 2.5 MILLIGRAM DAILY;
     Route: 048
  17. WARFARIN [Concomitant]

REACTIONS (3)
  - Dyspnoea [Not Recovered/Not Resolved]
  - Oxygen saturation decreased [Not Recovered/Not Resolved]
  - Treatment noncompliance [Unknown]
